APPROVED DRUG PRODUCT: ERTAPENEM SODIUM
Active Ingredient: ERTAPENEM SODIUM
Strength: EQ 1GM BASE/VIAL
Dosage Form/Route: INJECTABLE;INTRAMUSCULAR, INTRAVENOUS
Application: A209145 | Product #001
Applicant: SUN PHARMACEUTICAL INDUSTRIES LTD
Approved: May 2, 2023 | RLD: No | RS: No | Type: DISCN